FAERS Safety Report 14846588 (Version 2)
Quarter: 2018Q2

REPORT INFORMATION
  Report Type: Spontaneous
  Country: US (occurrence: US)
  Receive Date: 20180504
  Receipt Date: 20180509
  Transmission Date: 20180711
  Serious: No
  Sender: FDA-Public Use
  Company Number: US-PFIZER INC-2018182918

PATIENT
  Age: 62 Year
  Sex: Female
  Weight: 120.18 kg

DRUGS (2)
  1. CHANTIX [Suspect]
     Active Substance: VARENICLINE TARTRATE
     Indication: SMOKING CESSATION THERAPY
     Dosage: UNK
     Dates: start: 201711
  2. CHANTIX [Suspect]
     Active Substance: VARENICLINE TARTRATE
     Dosage: 1 MG, 2X/DAY
     Dates: end: 201804

REACTIONS (2)
  - Weight decreased [Not Recovered/Not Resolved]
  - Therapeutic response unexpected [Not Recovered/Not Resolved]

NARRATIVE: CASE EVENT DATE: 201802
